FAERS Safety Report 8161358-3 (Version None)
Quarter: 2012Q1

REPORT INFORMATION
  Report Type: 
  Country: None (occurrence: None)
  Receive Date: 20120224
  Receipt Date: 20120220
  Transmission Date: 20120608
  Serious: Yes (Death, Hospitalization, Other)
  Sender: FDA-Public Use
  Company Number: PHHY2011CA55016

PATIENT
  Sex: Male

DRUGS (2)
  1. SANDOSTATIN LAR [Suspect]
     Indication: VIPOMA
     Dosage: 60 MG, EVERY 4 WEEKS
     Route: 030
     Dates: start: 20100823
  2. AFINITOR [Suspect]
     Indication: VIPOMA
     Dosage: 10 MG, EVERYDAY
     Route: 048
     Dates: start: 20100603

REACTIONS (4)
  - DEATH [None]
  - HAEMOGLOBIN DECREASED [None]
  - BLOOD GLUCOSE DECREASED [None]
  - TERMINAL STATE [None]
